FAERS Safety Report 5333833-8 (Version None)
Quarter: 2007Q2

REPORT INFORMATION
  Report Type: 
  Country: None (occurrence: None)
  Receive Date: 20070524
  Receipt Date: 20070518
  Transmission Date: 20071010
  Serious: Yes (Life-Threatening)
  Sender: FDA-Public Use
  Company Number: GR-ASTRAZENECA-2007SE02798

PATIENT
  Age: 50 Year
  Sex: Female

DRUGS (2)
  1. SEROQUEL [Suspect]
     Indication: PSYCHOTIC DISORDER
     Route: 048
     Dates: start: 20070518
  2. BENZODIAZEPINES [Concomitant]

REACTIONS (4)
  - COMA [None]
  - HYPOTENSION [None]
  - INTENTIONAL OVERDOSE [None]
  - PNEUMOTHORAX [None]
